FAERS Safety Report 6626394-4 (Version None)
Quarter: 2010Q1

REPORT INFORMATION
  Report Type: 
  Country: None (occurrence: None)
  Receive Date: 20100310
  Receipt Date: 20090910
  Transmission Date: 20100710
  Serious: No
  Sender: FDA-Public Use
  Company Number: US-ABBOTT-09P-163-0591747-00

PATIENT
  Sex: Female
  Weight: 109.87 kg

DRUGS (3)
  1. LUPRON DEPOT [Suspect]
     Indication: ENDOMETRIOSIS
     Dates: start: 20090706
  2. TYLENOL W/ CODEINE [Concomitant]
     Indication: PAIN
  3. NORETHINDRONE ACETATE [Concomitant]
     Indication: HORMONE REPLACEMENT THERAPY

REACTIONS (2)
  - PAIN [None]
  - VAGINAL HAEMORRHAGE [None]
